FAERS Safety Report 9417417 (Version 1)
Quarter: 2013Q3

REPORT INFORMATION
  Report Type: Spontaneous
  Country: US (occurrence: None)
  Receive Date: 20130722
  Receipt Date: 20130722
  Transmission Date: 20140515
  Serious: No
  Sender: FDA-Public Use
  Company Number: None

PATIENT
  Age: 70 Year
  Sex: Male
  Weight: 63.5 kg

DRUGS (2)
  1. ACETAMINOPHEN-COD [Suspect]
     Indication: NEPHROLITHIASIS
     Dosage: ONE TABLET
     Route: 048
     Dates: start: 201303
  2. ACETAMINOPHEN-COD [Suspect]
     Indication: PAIN
     Dosage: ONE TABLET
     Route: 048
     Dates: start: 201303

REACTIONS (1)
  - Treatment failure [None]
